FAERS Safety Report 23427868 (Version 1)
Quarter: 2024Q1

REPORT INFORMATION
  Report Type: Spontaneous
  Country: US (occurrence: US)
  Receive Date: 20240122
  Receipt Date: 20240122
  Transmission Date: 20240410
  Serious: Yes (Other)
  Sender: FDA-Public Use
  Company Number: US-TRIS PHARMA, INC.-24US011295

PATIENT

DRUGS (5)
  1. DYANAVEL XR [Suspect]
     Active Substance: AMPHETAMINE
     Indication: Attention deficit hyperactivity disorder
     Dosage: 2 MILLILITRE, QD
     Route: 048
     Dates: start: 2018
  2. DYANAVEL XR [Suspect]
     Active Substance: AMPHETAMINE
     Dosage: 2.5 MILLILITRE, QD
     Route: 048
  3. DYANAVEL XR [Suspect]
     Active Substance: AMPHETAMINE
     Dosage: 3 MILLILITRE, QD
     Route: 048
  4. DYANAVEL XR [Suspect]
     Active Substance: AMPHETAMINE
     Dosage: 4 MILLILITRE, QD
     Route: 048
     Dates: end: 2023
  5. VITAMINS [UMBRELLA TERM] [Concomitant]
     Indication: Supplementation therapy
     Dosage: UNK
     Route: 048

REACTIONS (5)
  - Hallucination, auditory [Recovered/Resolved]
  - Agitation [Recovered/Resolved]
  - Disruptive mood dysregulation disorder [Recovered/Resolved]
  - Logorrhoea [Recovered/Resolved]
  - Irritability [Recovered/Resolved]

NARRATIVE: CASE EVENT DATE: 20200101
